FAERS Safety Report 23306459 (Version 1)
Quarter: 2023Q4

REPORT INFORMATION
  Report Type: Spontaneous
  Country: US (occurrence: US)
  Receive Date: 20231218
  Receipt Date: 20231218
  Transmission Date: 20240110
  Serious: No
  Sender: FDA-Public Use
  Company Number: US-BMS-IMIDS-REMS_SI-11023188

PATIENT
  Age: 79 Year
  Sex: Male

DRUGS (2)
  1. LENALIDOMIDE [Suspect]
     Active Substance: LENALIDOMIDE
     Indication: Product used for unknown indication
     Route: 048
     Dates: start: 20231113
  2. VELCADE [Suspect]
     Active Substance: BORTEZOMIB
     Indication: Product used for unknown indication

REACTIONS (5)
  - Decreased appetite [Recovering/Resolving]
  - Impaired quality of life [Recovering/Resolving]
  - Adverse event [Recovering/Resolving]
  - Rash [Recovering/Resolving]
  - Poor quality sleep [Recovering/Resolving]

NARRATIVE: CASE EVENT DATE: 20231101
